FAERS Safety Report 22083992 (Version 3)
Quarter: 2023Q2

REPORT INFORMATION
  Report Type: Spontaneous
  Country: US (occurrence: US)
  Receive Date: 20230310
  Receipt Date: 20230626
  Transmission Date: 20230721
  Serious: Yes (Hospitalization, Other)
  Sender: FDA-Public Use
  Company Number: US-009507513-2303USA001111

PATIENT
  Age: 54 Year
  Sex: Male

DRUGS (1)
  1. STEGLATRO [Suspect]
     Active Substance: ERTUGLIFLOZIN PIDOLATE
     Indication: Diabetes mellitus
     Dosage: 1 TABLET (15 MILLIGRAM) DAILY (QD)
     Route: 048
     Dates: start: 20201222, end: 20210322

REACTIONS (3)
  - Perineal abscess [Not Recovered/Not Resolved]
  - Fournier^s gangrene [Not Recovered/Not Resolved]
  - Drug ineffective [Unknown]

NARRATIVE: CASE EVENT DATE: 20210322
